FAERS Safety Report 5164224-0 (Version None)
Quarter: 2006Q4

REPORT INFORMATION
  Report Type: 
  Country: None (occurrence: None)
  Receive Date: 20060918
  Receipt Date: 20050927
  Transmission Date: 20070319
  Serious: Yes (Hospitalization, Other)
  Sender: FDA-Public Use
  Company Number: PHEH2005US10762

PATIENT
  Sex: Female

DRUGS (1)
  1. FEMARA [Suspect]
     Indication: NEOPLASM MALIGNANT
     Dosage: 2.5 MG, QD, ORAL
     Route: 048

REACTIONS (8)
  - COLECTOMY [None]
  - DRUG INEFFECTIVE [None]
  - IRRITABILITY [None]
  - MEMORY IMPAIRMENT [None]
  - METASTASES TO LARGE INTESTINE [None]
  - METASTASES TO LIVER [None]
  - METASTASES TO STOMACH [None]
  - NERVOUSNESS [None]
